FAERS Safety Report 9512390 (Version 2)
Quarter: 2014Q1

REPORT INFORMATION
  Report Type: Spontaneous
  Country: US (occurrence: None)
  Receive Date: 20130305
  Receipt Date: 20140306
  Transmission Date: 20141002
  Serious: Yes (Other)
  Sender: FDA-Public Use
  Company Number: 163-21880-12102303

PATIENT
  Age: 73 Year
  Sex: Female
  Weight: 39.3 kg

DRUGS (24)
  1. REVLIMID (LENALIDOMIDE) (CAPSULES) [Suspect]
     Indication: PLASMA CELL MYELOMA
     Route: 048
     Dates: start: 20101002
  2. KEFLEX (CEFALEXIN MONOHYDRATE) [Concomitant]
  3. ENABLEX (DARIFENACIN HYDROBROMIDE) [Concomitant]
  4. ZOMETA (ZOLEDRONIC ACID) [Concomitant]
  5. CENTRUM [Concomitant]
  6. PANTOPRAZOLE [Concomitant]
  7. BACTROBAN (MUPIROCIN) [Concomitant]
  8. LOSARTAN [Concomitant]
  9. DEXAMETHASONE [Concomitant]
  10. AMOXICILLIN [Concomitant]
  11. CLINDAMYCIN [Concomitant]
  12. DOXYCYCLINE [Concomitant]
  13. FLUOCINONIDE [Concomitant]
  14. BACTRIM DS [Concomitant]
  15. TEMAZEPAM [Concomitant]
  16. TRIAMTERENE/HCTZ (DYAZIDE) [Concomitant]
  17. BUPROPRION [Concomitant]
  18. MORPHINE [Concomitant]
  19. OXYCODONE [Concomitant]
  20. MIRALAX (MACROGOL) [Concomitant]
  21. AZELASTINE [Concomitant]
  22. ASPIRIN [Concomitant]
  23. CALCIUM [Concomitant]
  24. VITAMIN D (ERGOCALCIFEROL) [Concomitant]

REACTIONS (6)
  - Facial bones fracture [None]
  - Fall [None]
  - Respiratory tract congestion [None]
  - Drug dose omission [None]
  - Fatigue [None]
  - Joint swelling [None]
